FAERS Safety Report 6032957-X (Version None)
Quarter: 2009Q1

REPORT INFORMATION
  Report Type: 
  Country: None (occurrence: None)
  Receive Date: 20090109
  Receipt Date: 20090107
  Transmission Date: 20090719
  Serious: Yes (Hospitalization)
  Sender: FDA-Public Use
  Company Number: A0699120A

PATIENT
  Age: 41 Year
  Sex: Male
  Weight: 113.6 kg

DRUGS (11)
  1. AVANDIA [Suspect]
     Indication: DIABETES MELLITUS
     Dosage: 4MG TWICE PER DAY
     Route: 048
     Dates: start: 20000403, end: 20070305
  2. ACTOS [Concomitant]
  3. LIPITOR [Concomitant]
  4. WELLBUTRIN [Concomitant]
  5. LEXAPRO [Concomitant]
  6. ASPIRIN [Concomitant]
     Dosage: 325MG PER DAY
     Route: 048
  7. PLAVIX [Concomitant]
     Dosage: 75MG PER DAY
     Route: 048
  8. TOPROL-XL [Concomitant]
     Dosage: 25MG PER DAY
     Route: 048
  9. LISINOPRIL [Concomitant]
     Dosage: 20MG PER DAY
     Route: 048
  10. ATENOLOL [Concomitant]
  11. NITROSTAT [Concomitant]

REACTIONS (2)
  - ACUTE MYOCARDIAL INFARCTION [None]
  - PAIN [None]
